FAERS Safety Report 8585634-5 (Version None)
Quarter: 2012Q3

REPORT INFORMATION
  Report Type: 
  Country: None (occurrence: None)
  Receive Date: 20120802
  Receipt Date: 20120802
  Transmission Date: 20120928
  Serious: No
  Sender: FDA-Public Use
  Company Number: None

PATIENT
  Age: 74 Year
  Sex: Female

DRUGS (18)
  1. IPRATROPIUM BROMIDE [Concomitant]
  2. MEGESTROL ACETATE [Concomitant]
  3. FOLIC ACID [Concomitant]
  4. NORTRIPTYLINE [Concomitant]
  5. ALBUTEROL [Concomitant]
  6. M.V.I. [Concomitant]
  7. FUROSEMIDE [Concomitant]
  8. AMLODIPINE [Concomitant]
  9. ACYCLOVIR [Concomitant]
  10. POTASSIUM [Concomitant]
  11. CYANOCOBALAMIN [Concomitant]
  12. METOLAZONE [Concomitant]
  13. ISOSORBIDE MONONITRATE [Concomitant]
  14. DIGOXIN [Concomitant]
  15. REVLIMID [Suspect]
     Indication: LYMPHOMA
     Dosage: 20 MG X21/28 DAYS BY MOUTH
     Route: 048
     Dates: start: 20111101, end: 20120601
  16. LISINOPRIL [Concomitant]
  17. METOPROLOL TARTRATE [Concomitant]
  18. WARFARIN SODIUM [Concomitant]

REACTIONS (1)
  - FATIGUE [None]
